FAERS Safety Report 11665533 (Version 1)
Quarter: 2015Q4

REPORT INFORMATION
  Report Type: Spontaneous
  Country: FR (occurrence: FR)
  Receive Date: 20151027
  Receipt Date: 20151027
  Transmission Date: 20160304
  Serious: Yes (Hospitalization, Other)
  Sender: FDA-Public Use
  Company Number: FR-TEVA-602667ISR

PATIENT
  Age: 72 Year
  Sex: Female

DRUGS (11)
  1. LEVOTHYROX [Concomitant]
     Active Substance: LEVOTHYROXINE
  2. ZOLPIDEM [Concomitant]
     Active Substance: ZOLPIDEM\ZOLPIDEM TARTRATE
  3. NORSET 15 MG [Concomitant]
     Dosage: 3 DOSAGE FORMS DAILY;
     Route: 048
     Dates: start: 201508, end: 20150924
  4. OLANZAPINE. [Suspect]
     Active Substance: OLANZAPINE
     Indication: DEPRESSION
     Dosage: 2.5 MILLIGRAM DAILY;
     Route: 048
     Dates: start: 201508, end: 20150924
  5. PARKINANE L P 5 MG [Suspect]
     Active Substance: TRIHEXYPHENIDYL HYDROCHLORIDE
     Dosage: 1 DOSAGE FORMS DAILY;
     Route: 048
     Dates: start: 201508, end: 20150924
  6. KALEORID [Concomitant]
     Active Substance: POTASSIUM CHLORIDE
  7. ANAFRANIL [Suspect]
     Active Substance: CLOMIPRAMINE HYDROCHLORIDE
     Indication: DEPRESSION
     Dosage: 125 MILLIGRAM DAILY;
     Route: 048
     Dates: start: 201508, end: 20150924
  8. ATARAX [Suspect]
     Active Substance: HYDROXYZINE\HYDROXYZINE HYDROCHLORIDE
     Indication: ANXIETY
     Dosage: 87.5 MILLIGRAM DAILY;
     Route: 048
     Dates: start: 201508, end: 20150924
  9. SULFARLEM [Concomitant]
     Active Substance: ANETHOLTRITHION
  10. APROVEL [Concomitant]
     Active Substance: IRBESARTAN
  11. BROMAZEPAM [Concomitant]
     Active Substance: BROMAZEPAM

REACTIONS (5)
  - Balance disorder [Unknown]
  - Urinary retention [Recovered/Resolved]
  - Memory impairment [Unknown]
  - Hyponatraemia [Unknown]
  - Vertigo [Unknown]

NARRATIVE: CASE EVENT DATE: 20150926
